FAERS Safety Report 19391664 (Version 2)
Quarter: 2021Q3

REPORT INFORMATION
  Report Type: Spontaneous
  Country: IT (occurrence: IT)
  Receive Date: 20210608
  Receipt Date: 20210730
  Transmission Date: 20211014
  Serious: Yes (Death, Hospitalization, Other)
  Sender: FDA-Public Use
  Company Number: IT-JAZZ-2021-IT-010253

PATIENT
  Sex: Female

DRUGS (4)
  1. VYXEOS [Suspect]
     Active Substance: CYTARABINE\DAUNORUBICIN
     Indication: ACUTE MYELOID LEUKAEMIA
     Dosage: FIRST INDUCTION
     Dates: start: 20191112, end: 201911
  2. VYXEOS [Suspect]
     Active Substance: CYTARABINE\DAUNORUBICIN
     Dosage: UNKNOWN DOSE
     Dates: start: 20191116, end: 2019
  3. VYXEOS [Suspect]
     Active Substance: CYTARABINE\DAUNORUBICIN
     Dosage: UNKNOWN DOSE
     Dates: start: 20191114, end: 201911
  4. CICLOSPORINE [Concomitant]
     Active Substance: CYCLOSPORINE

REACTIONS (3)
  - Bone marrow transplant [Fatal]
  - Multiple organ dysfunction syndrome [Unknown]
  - Disease progression [Unknown]
